FAERS Safety Report 8421951-7 (Version None)
Quarter: 2012Q2

REPORT INFORMATION
  Report Type: 
  Country: None (occurrence: None)
  Receive Date: 20120608
  Receipt Date: 20120530
  Transmission Date: 20120825
  Serious: Yes (Hospitalization, Other)
  Sender: FDA-Public Use
  Company Number: US-CELGENEUS-163-21880-12031792

PATIENT
  Sex: Male
  Weight: 99.88 kg

DRUGS (10)
  1. AREDIA [Concomitant]
     Indication: MULTIPLE MYELOMA
     Route: 065
  2. HYDROCHLOROTHIAZDE TAB [Concomitant]
     Dosage: 25 MILLIGRAM
     Route: 065
  3. XANAX [Concomitant]
     Route: 065
  4. REVLIMID [Suspect]
     Indication: MULTIPLE MYELOMA
     Dosage: 10 MILLIGRAM
     Route: 048
     Dates: start: 20111121, end: 20120301
  5. TRAZODONE HCL [Concomitant]
     Indication: ANXIETY
     Route: 065
  6. TRAZODONE HCL [Concomitant]
     Indication: INSOMNIA
  7. REVLIMID [Suspect]
     Dosage: 25 MILLIGRAM
     Route: 048
     Dates: start: 20120313
  8. VERAPAMIL [Concomitant]
     Dosage: 480 MILLIGRAM
     Route: 065
  9. NAPROXEN (ALEVE) [Concomitant]
     Route: 065
  10. BENICAR [Concomitant]
     Dosage: 20 MILLIGRAM
     Route: 065

REACTIONS (6)
  - DRY SKIN [None]
  - RASH [None]
  - PATHOLOGICAL FRACTURE [None]
  - PROTEIN TOTAL INCREASED [None]
  - INFECTION [None]
  - THROMBOCYTOPENIA [None]
